FAERS Safety Report 4839526-5 (Version None)
Quarter: 2005Q4

REPORT INFORMATION
  Report Type: 
  Country: None (occurrence: None)
  Receive Date: 20051128
  Receipt Date: 20051128
  Transmission Date: 20060501
  Serious: Yes (Other)
  Sender: FDA-Public Use
  Company Number: None

PATIENT
  Age: 69 Year
  Sex: Female
  Weight: 58.9676 kg

DRUGS (3)
  1. ENALAPRIL TABLETS 10 MG MFD BY WATSON [Suspect]
     Indication: HYPERTENSION
     Dosage: 1 TABLET DAILY    A FEW WEEKS
     Dates: start: 20041230
  2. ZOCOR [Concomitant]
  3. VITAMINS [Concomitant]

REACTIONS (2)
  - BLOOD PRESSURE INADEQUATELY CONTROLLED [None]
  - PHARMACEUTICAL PRODUCT COMPLAINT [None]
